FAERS Safety Report 6160409-5 (Version None)
Quarter: 2009Q2

REPORT INFORMATION
  Report Type: 
  Country: None (occurrence: None)
  Receive Date: 20090420
  Receipt Date: 20090224
  Transmission Date: 20091009
  Serious: Yes (Other)
  Sender: FDA-Public Use
  Company Number: US-BAYER-200910307NA

PATIENT
  Age: 59 Year
  Sex: Female
  Weight: 79 kg

DRUGS (31)
  1. MAGNEVIST [Suspect]
     Indication: NUCLEAR MAGNETIC RESONANCE IMAGING
  2. OMNISCAN [Suspect]
     Indication: NUCLEAR MAGNETIC RESONANCE IMAGING
  3. OPTIMARK [Suspect]
     Indication: NUCLEAR MAGNETIC RESONANCE IMAGING
  4. MULTIHANCE [Suspect]
     Indication: NUCLEAR MAGNETIC RESONANCE IMAGING
  5. PROHANCE [Suspect]
     Indication: NUCLEAR MAGNETIC RESONANCE IMAGING
  6. LANTUS [Concomitant]
     Dates: start: 20051001
  7. COUMADIN [Concomitant]
  8. LASIX [Concomitant]
  9. NEXIUM [Concomitant]
  10. NOVOLOG [Concomitant]
  11. LEVOTHYROXINE SODIUM [Concomitant]
     Dosage: TOTAL DAILY DOSE: 75 ?G
     Route: 048
  12. METOLAZONE [Concomitant]
  13. FOSAMAX [Concomitant]
  14. ATACAND [Concomitant]
  15. PERCOCET [Concomitant]
     Indication: PAIN
  16. REPAGLINIDE [Concomitant]
     Dates: start: 20050919
  17. METOPROLOL SUCCINATE [Concomitant]
     Dates: start: 20050919
  18. CALCITRIOL [Concomitant]
     Dates: start: 20050919
  19. LISINOPRIL [Concomitant]
     Dosage: TOTAL DAILY DOSE: 20 MG
     Dates: start: 20050919
  20. FOLIC ACID [Concomitant]
     Dosage: TOTAL DAILY DOSE: 1 MG
     Dates: start: 20050919
  21. PHOSLO [Concomitant]
     Dosage: TOTAL DAILY DOSE: 999 MG
     Dates: start: 20050919
  22. PREDNISONE [Concomitant]
     Route: 048
     Dates: start: 20050919
  23. PRANDIN [Concomitant]
     Dosage: TOTAL DAILY DOSE: 6 MG
     Route: 048
     Dates: start: 20050919
  24. AMLODIPINE [Concomitant]
     Dosage: TOTAL DAILY DOSE: 10 MG
     Route: 048
     Dates: start: 20050919
  25. CALCIUM CARBONATE [Concomitant]
     Dosage: TOTAL DAILY DOSE: 2.50 MG
     Dates: start: 20050919
  26. CALCIFEROL [Concomitant]
     Dosage: TOTAL DAILY DOSE: 0.5 MG
     Route: 048
     Dates: start: 20050919
  27. FERROUS SULFATE TAB [Concomitant]
     Dosage: TOTAL DAILY DOSE: 650 MG
     Route: 048
     Dates: start: 20050919
  28. PROTONIX [Concomitant]
     Dosage: TOTAL DAILY DOSE: 40 MG
     Dates: start: 20050919
  29. CYMBALTA [Concomitant]
     Dosage: TOTAL DAILY DOSE: 300 MG
     Dates: start: 20050919
  30. NEURONTIN [Concomitant]
     Dosage: TOTAL DAILY DOSE: 100 MG
     Route: 048
     Dates: start: 20050919
  31. ARANESP [Concomitant]
     Dosage: EVERY THURSDAY
     Route: 058

REACTIONS (17)
  - ANHEDONIA [None]
  - ANXIETY [None]
  - EMOTIONAL DISTRESS [None]
  - FATIGUE [None]
  - FIBROSIS [None]
  - GENERAL PHYSICAL HEALTH DETERIORATION [None]
  - JOINT RANGE OF MOTION DECREASED [None]
  - MOBILITY DECREASED [None]
  - MUSCULAR WEAKNESS [None]
  - NEPHROGENIC SYSTEMIC FIBROSIS [None]
  - PAIN [None]
  - PAIN OF SKIN [None]
  - RESTLESSNESS [None]
  - SCAR [None]
  - SKIN HYPERTROPHY [None]
  - SKIN INDURATION [None]
  - SKIN TIGHTNESS [None]
